FAERS Safety Report 22001628 (Version 2)
Quarter: 2023Q1

REPORT INFORMATION
  Report Type: Spontaneous
  Country: IT (occurrence: IT)
  Receive Date: 20230216
  Receipt Date: 20230302
  Transmission Date: 20230418
  Serious: Yes (Death, Hospitalization, Other)
  Sender: FDA-Public Use
  Company Number: IT-TEVA-2023-IT-2855912

PATIENT
  Age: 59 Year
  Sex: Female

DRUGS (11)
  1. LACTULOSE [Suspect]
     Active Substance: LACTULOSE
     Indication: Hypernatraemia
     Route: 048
  2. GENTAMICIN [Suspect]
     Active Substance: GENTAMICIN
     Indication: Infection prophylaxis
     Route: 065
  3. NOREPINEPHRINE [Suspect]
     Active Substance: NOREPINEPHRINE
     Indication: Hypotension
     Route: 065
  4. LEVOCARNITINE [Suspect]
     Active Substance: LEVOCARNITINE
     Indication: Liver injury
     Route: 065
  5. CYCLOPHOSPHAMIDE [Concomitant]
     Active Substance: CYCLOPHOSPHAMIDE
     Indication: T-cell type acute leukaemia
     Route: 065
  6. IDARUBICIN [Concomitant]
     Active Substance: IDARUBICIN
     Indication: T-cell type acute leukaemia
     Route: 065
  7. VINCRISTINE [Concomitant]
     Active Substance: VINCRISTINE
     Indication: T-cell type acute leukaemia
     Route: 065
  8. OCTREOTIDE [Concomitant]
     Active Substance: OCTREOTIDE
     Indication: Product used for unknown indication
     Route: 065
  9. PHYTONADIONE [Concomitant]
     Active Substance: PHYTONADIONE
     Indication: Supplementation therapy
     Route: 065
  10. Plasma fibrinogen [Concomitant]
     Indication: Supplementation therapy
     Route: 065
  11. ANTITHROMBIN III HUMAN [Concomitant]
     Active Substance: ANTITHROMBIN III HUMAN
     Indication: Antithrombin III deficiency
     Route: 065

REACTIONS (1)
  - Drug ineffective [Fatal]
